FAERS Safety Report 23748273 (Version 2)
Quarter: 2024Q3

REPORT INFORMATION
  Report Type: Spontaneous
  Country: US (occurrence: US)
  Receive Date: 20240416
  Receipt Date: 20240806
  Transmission Date: 20241016
  Serious: No
  Sender: SANOFI AVENTIS
  Company Number: US-SA-SAC20240411000545

PATIENT
  Age: 25 Year
  Sex: Male

DRUGS (3)
  1. DUPIXENT [Suspect]
     Active Substance: DUPILUMAB
     Indication: Dermatitis allergic
     Dosage: 600 MG, 1X
     Route: 058
     Dates: start: 202403
  2. DUPIXENT [Suspect]
     Active Substance: DUPILUMAB
     Indication: Urticaria
     Dosage: 300 MG, QOW
     Route: 058
     Dates: start: 202403
  3. DUPIXENT [Suspect]
     Active Substance: DUPILUMAB
     Indication: Mast cell activation syndrome

REACTIONS (8)
  - Fatigue [Unknown]
  - Erythema [Unknown]
  - Skin burning sensation [Unknown]
  - Insomnia [Unknown]
  - Pruritus [Unknown]
  - Arthralgia [Unknown]
  - Condition aggravated [Unknown]
  - Product use in unapproved indication [Unknown]

NARRATIVE: CASE EVENT DATE: 20240101
